FAERS Safety Report 12471725 (Version 3)
Quarter: 2017Q3

REPORT INFORMATION
  Report Type: Spontaneous
  Country: JP (occurrence: JP)
  Receive Date: 20160616
  Receipt Date: 20170731
  Transmission Date: 20171127
  Serious: Yes (Death, Life-Threatening, Other)
  Sender: FDA-Public Use
  Company Number: JP-PFIZER INC-2016294369

PATIENT
  Age: 73 Year
  Sex: Female

DRUGS (3)
  1. SUTENT [Suspect]
     Active Substance: SUNITINIB MALATE
     Indication: RENAL CANCER
     Dosage: 37.5 MG, CYCLIC (DAILY, TREATMENT CYCLE OF 2 WEEKS ON AND 1 WEEK OFF)
     Route: 048
  2. SUTENT [Suspect]
     Active Substance: SUNITINIB MALATE
     Dosage: 37.5 MG, CYCLIC (2 WEEKS ON AND 2 WEEKS OFF SCHEDULE)
  3. ANASTROZOLE. [Concomitant]
     Active Substance: ANASTROZOLE
     Indication: BREAST CANCER
     Dosage: UNK
     Dates: end: 201704

REACTIONS (5)
  - Hepatic function abnormal [Unknown]
  - Breast cancer [Fatal]
  - Epistaxis [Recovered/Resolved]
  - Ascites [Unknown]
  - Second primary malignancy [Fatal]

NARRATIVE: CASE EVENT DATE: 201406
